FAERS Safety Report 7295037-1 (Version None)
Quarter: 2011Q1

REPORT INFORMATION
  Report Type: 
  Country: None (occurrence: None)
  Receive Date: 20110216
  Receipt Date: 20110208
  Transmission Date: 20110831
  Serious: Yes (Hospitalization)
  Sender: FDA-Public Use
  Company Number: CA-JNJFOC-20110202877

PATIENT
  Sex: Female
  Weight: 67 kg

DRUGS (9)
  1. ASACOL [Concomitant]
     Route: 048
  2. VITAMIN D [Concomitant]
     Route: 048
  3. GLUCOSAMINE [Concomitant]
     Route: 048
  4. REMICADE [Suspect]
     Indication: CROHN'S DISEASE
     Route: 042
  5. PARIET [Concomitant]
     Route: 048
  6. CALCIUM [Concomitant]
     Route: 048
  7. ZOPICLONE [Concomitant]
  8. IMURAN [Concomitant]
     Dosage: 3 PILLS
     Route: 048
  9. PROCTOFOAM HC [Concomitant]
     Route: 065

REACTIONS (2)
  - ANKLE OPERATION [None]
  - FALL [None]
